FAERS Safety Report 8802185 (Version 1)
Quarter: 2012Q4

REPORT INFORMATION
  Report Type: 
  Country: AU (occurrence: AU)
  Receive Date: 20120921
  Receipt Date: 20120921
  Transmission Date: 20130627
  Serious: Yes (Other)
  Sender: FDA-Public Use
  Company Number: PHHY2012AU081092

PATIENT
  Sex: Male

DRUGS (4)
  1. BASILIXIMAB [Suspect]
  2. PREDNISOLONE [Suspect]
  3. TACROLIMUS [Suspect]
  4. MYCOPHENOLATE MOFETIL [Suspect]

REACTIONS (10)
  - Tubulointerstitial nephritis [Unknown]
  - Clostridial infection [Unknown]
  - Microsporidia infection [Unknown]
  - Fungaemia [Unknown]
  - Fungal skin infection [Unknown]
  - Pneumonia [Unknown]
  - Atypical mycobacterial pneumonia [Unknown]
  - Cytomegalovirus colitis [Unknown]
  - Kidney transplant rejection [Unknown]
  - Drug ineffective [Unknown]
